FAERS Safety Report 9077115 (Version 1)
Quarter: 2013Q1

REPORT INFORMATION
  Report Type: Report from Study
  Country: US (occurrence: US)
  Receive Date: 20130129
  Receipt Date: 20130129
  Transmission Date: 20140127
  Serious: No
  Sender: FDA-Public Use
  Company Number: US-ABBOTT-12P-163-0947799-00

PATIENT
  Age: 19 Year
  Sex: Female

DRUGS (4)
  1. HUMIRA 40 MG/0.8 ML PEN [Suspect]
     Indication: CROHN^S DISEASE
     Dates: start: 20120506, end: 20120603
  2. PREDNISONE [Concomitant]
     Indication: PRODUCT USED FOR UNKNOWN INDICATION
     Dosage: 20MG TWICE DAILY WHILE ON HUMIRA
  3. PREDNISONE [Concomitant]
     Dosage: 5MG IN AM AND 2.5MG IN PM POST HUMIRA
  4. PREDNISONE [Concomitant]
     Dosage: IN THE PM

REACTIONS (5)
  - White blood cell count increased [Unknown]
  - Abdominal pain [Not Recovered/Not Resolved]
  - Drug ineffective [Unknown]
  - Adverse drug reaction [Recovered/Resolved]
  - Abdominal pain [Recovered/Resolved]
